FAERS Safety Report 11750614 (Version 2)
Quarter: 2015Q4

REPORT INFORMATION
  Report Type: Report from Study
  Country: HN (occurrence: HN)
  Receive Date: 20151118
  Receipt Date: 20151207
  Transmission Date: 20160304
  Serious: Yes (Death)
  Sender: FDA-Public Use
  Company Number: PHHY2015HN150214

PATIENT
  Age: 18 Year
  Sex: Female
  Weight: 34.3 kg

DRUGS (1)
  1. TASIGNA [Suspect]
     Active Substance: NILOTINIB
     Indication: CHRONIC MYELOID LEUKAEMIA
     Dosage: 400 MG, BID
     Route: 048
     Dates: start: 201412

REACTIONS (2)
  - Sudden death [Fatal]
  - Asthenia [Unknown]

NARRATIVE: CASE EVENT DATE: 20151112
